FAERS Safety Report 4416456-4 (Version None)
Quarter: 2004Q3

REPORT INFORMATION
  Report Type: 
  Country: None (occurrence: None)
  Receive Date: 20040730
  Receipt Date: 20040720
  Transmission Date: 20050211
  Serious: Yes (Hospitalization)
  Sender: FDA-Public Use
  Company Number: US-2004-029043

PATIENT
  Age: 44 Year
  Sex: Female

DRUGS (2)
  1. BETASERON [Suspect]
     Indication: MULTIPLE SCLEROSIS
     Dosage: 8M IU, EVERY 2 D, SUBCUTANEOUS
     Route: 058
     Dates: start: 19940501
  2. PREMARIN /NEZ/(ESTROGENS CONJUGATED) [Concomitant]

REACTIONS (1)
  - CEREBROVASCULAR ACCIDENT [None]
